FAERS Safety Report 24725139 (Version 1)
Quarter: 2024Q4

REPORT INFORMATION
  Report Type: Spontaneous
  Country: US (occurrence: US)
  Receive Date: 20241212
  Receipt Date: 20241212
  Transmission Date: 20250115
  Serious: No
  Sender: SANOFI AVENTIS
  Company Number: US-SA-2024SA366154

PATIENT
  Age: 23 Year
  Sex: Female

DRUGS (3)
  1. DUPIXENT [Suspect]
     Active Substance: DUPILUMAB
     Indication: Eosinophilic oesophagitis
     Dosage: 300 MG, QW
     Route: 058
     Dates: start: 202408
  2. DUPIXENT [Suspect]
     Active Substance: DUPILUMAB
     Indication: Dysphagia
  3. DUPIXENT [Suspect]
     Active Substance: DUPILUMAB
     Indication: Gastrooesophageal reflux disease

REACTIONS (2)
  - Injection site swelling [Unknown]
  - Product use in unapproved indication [Unknown]

NARRATIVE: CASE EVENT DATE: 20240101
